FAERS Safety Report 14955841 (Version 2)
Quarter: 2018Q3

REPORT INFORMATION
  Report Type: Spontaneous
  Country: CN (occurrence: CN)
  Receive Date: 20180531
  Receipt Date: 20180821
  Transmission Date: 20181010
  Serious: Yes (Hospitalization, Other)
  Sender: FDA-Public Use
  Company Number: CN-009507513-1805CHN010176

PATIENT
  Age: 59 Year
  Sex: Female

DRUGS (1)
  1. SIMVASTATIN. [Suspect]
     Active Substance: SIMVASTATIN
     Indication: HYPERLIPIDAEMIA
     Dosage: 20 MG, ONCE EVERY NIGHT
     Route: 048
     Dates: start: 20130605

REACTIONS (3)
  - Drug-induced liver injury [Recovering/Resolving]
  - Hepatic fibrosis [Recovering/Resolving]
  - Chronic hepatitis [Recovering/Resolving]

NARRATIVE: CASE EVENT DATE: 201307
